FAERS Safety Report 25822092 (Version 1)
Quarter: 2025Q3

REPORT INFORMATION
  Report Type: Spontaneous
  Country: GB (occurrence: GB)
  Receive Date: 20250919
  Receipt Date: 20250919
  Transmission Date: 20251021
  Serious: Yes (Other)
  Sender: JUBILANT
  Company Number: None

PATIENT

DRUGS (2)
  1. OLMESARTAN MEDOXOMIL [Suspect]
     Active Substance: OLMESARTAN MEDOXOMIL
     Indication: Product used for unknown indication
     Dates: end: 20250908
  2. SYNTHROID [Concomitant]
     Active Substance: LEVOTHYROXINE SODIUM
     Indication: Product used for unknown indication

REACTIONS (1)
  - Back pain [Not Recovered/Not Resolved]

NARRATIVE: CASE EVENT DATE: 20250515
